FAERS Safety Report 7291153-9 (Version None)
Quarter: 2011Q1

REPORT INFORMATION
  Report Type: 
  Country: None (occurrence: None)
  Receive Date: 20110214
  Receipt Date: 20110203
  Transmission Date: 20110831
  Serious: Yes (Hospitalization)
  Sender: FDA-Public Use
  Company Number: IL-ELI_LILLY_AND_COMPANY-IL201012000150

PATIENT
  Age: 57 Year
  Sex: Female
  Weight: 71 kg

DRUGS (14)
  1. FORTEO [Suspect]
     Dosage: 20 UG, 3/D
  2. FORTEO [Suspect]
     Dosage: 20 UG, DAILY (1/D)
     Route: 058
  3. NORMITEN [Concomitant]
     Dosage: UNK, UNKNOWN
     Route: 065
  4. ELTROXIN [Concomitant]
     Dosage: UNK, UNKNOWN
     Route: 065
  5. CALCIUM CARBONATE [Concomitant]
     Dosage: UNK, UNKNOWN
     Route: 065
  6. MAGNESIUM [Concomitant]
     Dosage: UNK, UNKNOWN
     Route: 065
  7. MONONIT [Concomitant]
     Dosage: UNK, UNKNOWN
     Route: 065
  8. IRON [Concomitant]
     Dosage: UNK, UNKNOWN
     Route: 065
  9. FOLIC ACID [Concomitant]
     Dosage: UNK, UNKNOWN
     Route: 065
  10. FORTEO [Suspect]
     Indication: HYPOPARATHYROIDISM
     Dosage: 40 UG, DAILY (1/D)
     Route: 065
     Dates: start: 20101118
  11. VITAMIN E [Concomitant]
     Dosage: UNK, UNKNOWN
     Route: 065
  12. CIPRAMIL [Concomitant]
     Dosage: UNK, UNKNOWN
     Route: 065
  13. SIMVASTATIN [Concomitant]
     Dosage: UNK, UNKNOWN
     Route: 065
  14. ASPIRIN [Concomitant]
     Dosage: UNK, UNKNOWN
     Route: 065

REACTIONS (6)
  - NAUSEA [None]
  - OVERDOSE [None]
  - HYPERCALCAEMIA [None]
  - BLOOD PHOSPHORUS ABNORMAL [None]
  - OFF LABEL USE [None]
  - MEDICATION ERROR [None]
